FAERS Safety Report 17950678 (Version 2)
Quarter: 2020Q3

REPORT INFORMATION
  Report Type: Spontaneous
  Country: PT (occurrence: PT)
  Receive Date: 20200626
  Receipt Date: 20200716
  Transmission Date: 20201103
  Serious: Yes (Other)
  Sender: FDA-Public Use
  Company Number: PT-MYLANLABS-2020M1058050

PATIENT
  Age: 68 Year
  Sex: Male
  Weight: 92.5 kg

DRUGS (12)
  1. AMIODARONE [Concomitant]
     Active Substance: AMIODARONE
     Dosage: 200 MILLIGRAM, QD (1CP AO PA )
     Route: 048
  2. METOCLOPRAMIDE. [Concomitant]
     Active Substance: METOCLOPRAMIDE
     Dosage: 3ID ??} PASSA A SOS
  3. BETAHISTINE [Concomitant]
     Active Substance: BETAHISTINE
     Dosage: 1CP PA ?? } PASSA A SOS
     Route: 048
  4. OMEPRAZOLE. [Concomitant]
     Active Substance: OMEPRAZOLE
     Dosage: 20 MILLIGRAM, QD (1CP EM JJ)
     Route: 048
  5. METOPROLOL. [Concomitant]
     Active Substance: METOPROLOL
     Dosage: 100 MILLIGRAM, QD (1CP AO PA)
     Route: 048
  6. LOPERAMIDE [Concomitant]
     Active Substance: LOPERAMIDE
     Dosage: SOS
     Route: 048
  7. TANSULOSINA MYLAN 0,4 MG C?PSULAS DE LIBERTA??O PROLONGADA [Suspect]
     Active Substance: TAMSULOSIN HYDROCHLORIDE
     Dosage: 0.4 MILLIGRAM, QD (1CP A NOITE )  )
     Route: 048
     Dates: start: 20200525, end: 20200526
  8. PARACETAMOL [Concomitant]
     Active Substance: ACETAMINOPHEN
     Dosage: 1000 MILLIGRAM, PRN (SOS)
     Route: 048
  9. TROSYD [Concomitant]
     Dosage: 560 DOSAGE FORM, QD (APLICA 2ID)
     Route: 048
  10. FLUOXETINE [Concomitant]
     Active Substance: FLUOXETINE HYDROCHLORIDE
     Dosage: 1 DOSAGE FORM (1CP AO PA  )
     Route: 048
  11. TANSULOSINA MYLAN 0,4 MG C?PSULAS DE LIBERTA??O PROLONGADA [Suspect]
     Active Substance: TAMSULOSIN HYDROCHLORIDE
     Indication: BENIGN PROSTATIC HYPERPLASIA
     Dosage: 0.4 MILLIGRAM, QD,1 CUP AT NIGHT
     Route: 048
     Dates: start: 20200526, end: 20200527
  12. FLUCONAZOLE. [Concomitant]
     Active Substance: FLUCONAZOLE
     Dosage: 200 MILLIGRAM, QW

REACTIONS (1)
  - Generalised oedema [Recovered/Resolved]

NARRATIVE: CASE EVENT DATE: 20200525
